FAERS Safety Report 6904858-3 (Version None)
Quarter: 2010Q3

REPORT INFORMATION
  Report Type: 
  Country: None (occurrence: None)
  Receive Date: 20100804
  Receipt Date: 20090721
  Transmission Date: 20110219
  Serious: No
  Sender: FDA-Public Use
  Company Number: US-PFIZER INC-2009245983

PATIENT
  Age: 48 Year
  Sex: Female
  Weight: 102 kg

DRUGS (4)
  1. LYRICA [Suspect]
     Indication: MUSCULOSKELETAL PAIN
     Dosage: 75 MG, 2X/DAY
     Route: 048
     Dates: start: 20090717
  2. LYRICA [Suspect]
     Indication: BONE DISORDER
  3. IBUPROFEN [Concomitant]
     Indication: PAIN
     Dosage: 200 MG TWO PILLS EVERY 46 HOUR
  4. MINOCYCLINE HCL [Concomitant]
     Indication: ERYTHEMA
     Dosage: 100 MG/DAY
     Route: 048

REACTIONS (3)
  - DRY MOUTH [None]
  - VISION BLURRED [None]
  - VISUAL IMPAIRMENT [None]
